FAERS Safety Report 16959057 (Version 5)
Quarter: 2025Q3

REPORT INFORMATION
  Report Type: Spontaneous
  Country: EU (occurrence: EU)
  Receive Date: 20191024
  Receipt Date: 20250701
  Transmission Date: 20251020
  Serious: Yes (Death, Hospitalization, Other)
  Sender: AUROBINDO
  Company Number: None

PATIENT
  Age: 40 Year
  Sex: Female

DRUGS (11)
  1. GEMCITABINE [Suspect]
     Active Substance: GEMCITABINE
     Indication: Non-Hodgkin^s lymphoma
     Route: 065
  2. GEMCITABINE [Suspect]
     Active Substance: GEMCITABINE
     Indication: Angiocentric lymphoma
  3. OXALIPLATIN [Suspect]
     Active Substance: OXALIPLATIN
     Indication: Non-Hodgkin^s lymphoma
     Route: 065
  4. OXALIPLATIN [Suspect]
     Active Substance: OXALIPLATIN
     Indication: Angiocentric lymphoma
  5. ASPARAGINASE [Suspect]
     Active Substance: ASPARAGINASE
     Indication: Non-Hodgkin^s lymphoma
     Route: 065
  6. ASPARAGINASE [Suspect]
     Active Substance: ASPARAGINASE
     Indication: Angiocentric lymphoma
  7. METHOTREXATE [Suspect]
     Active Substance: METHOTREXATE
     Indication: Non-Hodgkin^s lymphoma
     Route: 065
  8. METHOTREXATE [Suspect]
     Active Substance: METHOTREXATE
     Indication: Angiocentric lymphoma
  9. DEXAMETHASONE [Suspect]
     Active Substance: DEXAMETHASONE
     Indication: Non-Hodgkin^s lymphoma
     Route: 065
  10. DEXAMETHASONE [Suspect]
     Active Substance: DEXAMETHASONE
     Indication: Angiocentric lymphoma
  11. PEGASPARGASE [Suspect]
     Active Substance: PEGASPARGASE
     Indication: Angiocentric lymphoma
     Route: 065

REACTIONS (10)
  - Hepatic failure [Fatal]
  - Hepatic encephalopathy [Fatal]
  - Bone marrow infiltration [Fatal]
  - Multiple organ dysfunction syndrome [Fatal]
  - Bone marrow failure [Fatal]
  - Acute kidney injury [Unknown]
  - Anuria [Unknown]
  - Acute respiratory distress syndrome [Unknown]
  - Renal failure [Unknown]
  - Off label use [Unknown]

NARRATIVE: CASE EVENT DATE: 20140101
